FAERS Safety Report 10935739 (Version 1)
Quarter: 2015Q1

REPORT INFORMATION
  Report Type: Spontaneous
  Country: AU (occurrence: AU)
  Receive Date: 20150320
  Receipt Date: 20150320
  Transmission Date: 20150721
  Serious: Yes (Hospitalization)
  Sender: FDA-Public Use
  Company Number: AU-NAPPMUNDI-GBR-2015-0026341

PATIENT
  Sex: Female

DRUGS (6)
  1. ENDONE [Concomitant]
     Active Substance: OXYCODONE HYDROCHLORIDE
  2. LIPITOR [Concomitant]
     Active Substance: ATORVASTATIN CALCIUM
  3. OXYCONTIN [Suspect]
     Active Substance: OXYCODONE HYDROCHLORIDE
     Indication: BACK PAIN
     Dosage: 70MG (30MG IN THE MORNING, 40MG AT NIGHT), DAILY
     Route: 048
     Dates: start: 201412
  4. PRISTIQ EXTENDED RELEASE [Concomitant]
     Active Substance: DESVENLAFAXINE SUCCINATE
  5. PANADOL                            /00020001/ [Concomitant]
  6. STEMETIL                           /00013301/ [Concomitant]

REACTIONS (1)
  - Hepatic failure [Unknown]
